FAERS Safety Report 26102208 (Version 1)
Quarter: 2025Q4

REPORT INFORMATION
  Report Type: Spontaneous
  Country: CN (occurrence: CN)
  Receive Date: 20251128
  Receipt Date: 20251128
  Transmission Date: 20260117
  Serious: Yes (Hospitalization)
  Sender: GLAXOSMITHKLINE
  Company Number: CN-GLAXOSMITHKLINE INC-CN2025CHI149790

PATIENT
  Age: 59 Year
  Sex: Male
  Weight: 47 kg

DRUGS (1)
  1. TRELEGY ELLIPTA [Suspect]
     Active Substance: FLUTICASONE FUROATE\UMECLIDINIUM BROMIDE\VILANTEROL TRIFENATATE
     Indication: Lung disorder
     Dosage: 1 PUFF(S), QD

REACTIONS (4)
  - Urethritis [Recovering/Resolving]
  - Dysuria [Recovering/Resolving]
  - Foreskin oedema [Recovering/Resolving]
  - Product used for unknown indication [Unknown]

NARRATIVE: CASE EVENT DATE: 20251108
